FAERS Safety Report 4394010-0 (Version None)
Quarter: 2004Q3

REPORT INFORMATION
  Report Type: 
  Country: None (occurrence: None)
  Receive Date: 20040709
  Receipt Date: 20040701
  Transmission Date: 20050211
  Serious: Yes (Other)
  Sender: FDA-Public Use
  Company Number: US-MERCK-0407USA00163

PATIENT
  Age: 75 Year
  Sex: Male
  Weight: 136 kg

DRUGS (7)
  1. ASPIRIN [Concomitant]
     Route: 065
  2. CARTIA (DILTIAZEM HYDROCHLORIDE) [Concomitant]
     Route: 065
  3. MOBIC [Concomitant]
     Route: 065
  4. REQUIP [Concomitant]
     Route: 065
  5. ZOCOR [Suspect]
     Indication: BLOOD CHOLESTEROL INCREASED
     Route: 048
     Dates: start: 20030501, end: 20040529
  6. DETROL [Concomitant]
     Route: 065
  7. AMBIEN [Concomitant]
     Route: 065

REACTIONS (4)
  - ARTHROPATHY [None]
  - DIFFICULTY IN WALKING [None]
  - FATIGUE [None]
  - WEIGHT INCREASED [None]
